FAERS Safety Report 8153520-0 (Version None)
Quarter: 2012Q1

REPORT INFORMATION
  Report Type: 
  Country: None (occurrence: None)
  Receive Date: 20120215
  Receipt Date: 20120203
  Transmission Date: 20120608
  Serious: Yes (Hospitalization)
  Sender: FDA-Public Use
  Company Number: 2011HGS-003047

PATIENT
  Age: 54 Year
  Sex: Female

DRUGS (6)
  1. BENLYSTA [Suspect]
     Indication: SYSTEMIC LUPUS ERYTHEMATOSUS
     Dosage: 1 IN 28 D, INTRAVENOUS DRIP
     Route: 041
     Dates: start: 20110801
  2. CORTICOSTEROIDS (CORTICOSTEROIDS) [Concomitant]
  3. IMURAN [Concomitant]
  4. PREDNISONE [Concomitant]
  5. PLAQUENIL (HYDROXOYCHLOROQUINE PHOSPHATE(HYDROXYCHOLOROQUINE PHOSPHATE [Concomitant]
  6. SYNTHROID (LEVOTHYROXINE SODIUM) (LEVBOTHROXINE SODIUM) [Concomitant]

REACTIONS (7)
  - LOSS OF CONSCIOUSNESS [None]
  - PERICARDITIS [None]
  - RASH [None]
  - STAPHYLOCOCCAL INFECTION [None]
  - PATHOGEN RESISTANCE [None]
  - DRUG HYPERSENSITIVITY [None]
  - EXCORIATION [None]
